FAERS Safety Report 5448615-6 (Version None)
Quarter: 2007Q3

REPORT INFORMATION
  Report Type: 
  Country: None (occurrence: None)
  Receive Date: 20070906
  Receipt Date: 20070906
  Transmission Date: 20080115
  Serious: Yes (Hospitalization)
  Sender: FDA-Public Use
  Company Number: None

PATIENT
  Sex: Male
  Weight: 97 kg

DRUGS (10)
  1. SUNITINIB [Suspect]
     Indication: RENAL CANCER METASTATIC
     Dosage: 50 MG QD X 2 Q 6 WKS PO
     Route: 048
     Dates: start: 20070530
  2. DOCUSATE SODIUM [Concomitant]
  3. BENSONATE [Concomitant]
  4. GUAIFENESIN [Concomitant]
  5. ESOMEPRAZOLE MAGNESIUM [Concomitant]
  6. ATENOLOL [Concomitant]
  7. ARANESP [Concomitant]
  8. M.V.I. [Concomitant]
  9. TESSALON [Concomitant]
  10. COMPAZINE [Concomitant]

REACTIONS (2)
  - BRONCHIAL DISORDER [None]
  - HAEMOPTYSIS [None]
